FAERS Safety Report 20890148 (Version 3)
Quarter: 2022Q3

REPORT INFORMATION
  Report Type: Report from Study
  Country: US (occurrence: US)
  Receive Date: 20220530
  Receipt Date: 20220630
  Transmission Date: 20221027
  Serious: No
  Sender: FDA-Public Use
  Company Number: US-NOVARTISTESTPH-NVSC2022US123297

PATIENT
  Sex: Male

DRUGS (1)
  1. KESIMPTA [Suspect]
     Active Substance: OFATUMUMAB
     Indication: Multiple sclerosis
     Dosage: 20 MG, QMO (EVERY MONTH NO LD NEEDED)
     Route: 058

REACTIONS (4)
  - Muscle spasms [Unknown]
  - Tremor [Unknown]
  - Pain [Unknown]
  - Product dose omission issue [Unknown]
